FAERS Safety Report 16768910 (Version 3)
Quarter: 2020Q2

REPORT INFORMATION
  Report Type: Report from Study
  Country: US (occurrence: US)
  Receive Date: 20190903
  Receipt Date: 20200602
  Transmission Date: 20200713
  Serious: No
  Sender: FDA-Public Use
  Company Number: US-SA-2019SA240691

PATIENT

DRUGS (1)
  1. DUPILUMAB [Suspect]
     Active Substance: DUPILUMAB
     Indication: ASTHMA
     Dosage: 300 MG, QOW
     Route: 058
     Dates: start: 20190320

REACTIONS (4)
  - Gastrectomy [Unknown]
  - Cough [Recovering/Resolving]
  - Malaise [Recovering/Resolving]
  - Memory impairment [Unknown]

NARRATIVE: CASE EVENT DATE: 201908
